FAERS Safety Report 6932326-1 (Version None)
Quarter: 2010Q3

REPORT INFORMATION
  Report Type: 
  Country: None (occurrence: None)
  Receive Date: 20100813
  Receipt Date: 20100601
  Transmission Date: 20110219
  Serious: No
  Sender: FDA-Public Use
  Company Number: 1000014223

PATIENT
  Age: 40 Year
  Sex: Female

DRUGS (7)
  1. SAVELLA [Suspect]
     Indication: FIBROMYALGIA
     Dosage: 12.5 MG (12.5 MG,1 IN 1 D), ORAL; 12.5 MG (12.5 MG,1 IN 1 D), ORAL; 50 MG (25 MG,2 IN 1 D), ORAL
     Route: 048
     Dates: start: 20100526, end: 20100526
  2. SAVELLA [Suspect]
     Indication: FIBROMYALGIA
     Dosage: 12.5 MG (12.5 MG,1 IN 1 D), ORAL; 12.5 MG (12.5 MG,1 IN 1 D), ORAL; 50 MG (25 MG,2 IN 1 D), ORAL
     Route: 048
     Dates: start: 20100527, end: 20100528
  3. SAVELLA [Suspect]
     Indication: FIBROMYALGIA
     Dosage: 12.5 MG (12.5 MG,1 IN 1 D), ORAL; 12.5 MG (12.5 MG,1 IN 1 D), ORAL; 50 MG (25 MG,2 IN 1 D), ORAL
     Route: 048
     Dates: start: 20100529
  4. CYMBALTA [Suspect]
     Indication: FIBROMYALGIA
     Dosage: (90 MG),ORAL
     Route: 048
     Dates: end: 20100526
  5. GLEEVEC [Concomitant]
  6. FLEXERIL [Concomitant]
  7. HYDROCODONE BITARTRATE [Concomitant]

REACTIONS (5)
  - DIZZINESS [None]
  - HYPOAESTHESIA [None]
  - NAUSEA [None]
  - PARAESTHESIA [None]
  - SENSORY DISTURBANCE [None]
